FAERS Safety Report 8806175 (Version 2)
Quarter: 2014Q2

REPORT INFORMATION
  Report Type: Report from Study
  Country: MX (occurrence: MX)
  Receive Date: 20120925
  Receipt Date: 20130725
  Transmission Date: 20141212
  Serious: Yes (Other)
  Sender: FDA-Public Use
  Company Number: PHHY2012MX082799

PATIENT
  Age: 84 Year
  Sex: Female

DRUGS (1)
  1. EXFORGE HCT [Suspect]
     Indication: HYPERTENSION
     Dosage: 1 TABLET (160/5/12.5 MG) PER DAY
     Route: 048
     Dates: start: 200801

REACTIONS (3)
  - Angina pectoris [Not Recovered/Not Resolved]
  - Arrhythmia [Recovered/Resolved]
  - Myalgia [Recovered/Resolved]
